FAERS Safety Report 25130863 (Version 1)
Quarter: 2025Q1

REPORT INFORMATION
  Report Type: Spontaneous
  Country: US (occurrence: US)
  Receive Date: 20250327
  Receipt Date: 20250327
  Transmission Date: 20250409
  Serious: No
  Sender: BAYER HEALTHCARE LLC
  Company Number: US-BAYER-2025A039563

PATIENT
  Sex: Female

DRUGS (1)
  1. LOTRIMIN ULTRA ATHLETES FOOT [Suspect]
     Active Substance: BUTENAFINE HYDROCHLORIDE
     Indication: Skin disorder
     Dosage: UNK, QD
     Route: 061
     Dates: start: 20250321

REACTIONS (1)
  - Paraesthesia [Recovering/Resolving]
